FAERS Safety Report 19873722 (Version 3)
Quarter: 2021Q4

REPORT INFORMATION
  Report Type: Spontaneous
  Country: PL (occurrence: PL)
  Receive Date: 20210922
  Receipt Date: 20211006
  Transmission Date: 20220303
  Serious: Yes (Hospitalization, Other)
  Sender: FDA-Public Use
  Company Number: PL-ORION CORPORATION ORION PHARMA-SERT2021-0003

PATIENT
  Age: 76 Year
  Sex: Female

DRUGS (107)
  1. VENLAFAXINE [Suspect]
     Active Substance: VENLAFAXINE HYDROCHLORIDE
     Indication: Product used for unknown indication
     Dosage: UNK
     Route: 065
  2. VENLAFAXINE [Suspect]
     Active Substance: VENLAFAXINE HYDROCHLORIDE
     Dosage: UNK
  3. FENTANYL [Suspect]
     Active Substance: FENTANYL
     Indication: Spinal muscular atrophy
     Dosage: UNK
  4. FENTANYL [Suspect]
     Active Substance: FENTANYL
     Dosage: 14400 MICROGRAM, QD (14400 MICROGRAM, DAILY)
     Route: 065
  5. FENTANYL [Suspect]
     Active Substance: FENTANYL
     Dosage: UNK (12 PILLS PER DAY)
  6. FENTANYL [Suspect]
     Active Substance: FENTANYL
     Indication: Product used for unknown indication
     Dosage: 150 MICROGRAM, QH (1 PATCH EVERY 72 HOURS.)
     Route: 062
  7. FENTANYL [Suspect]
     Active Substance: FENTANYL
     Dosage: 400 MICROGRAM (4 PATCHES OF 100 ?G / H EVERY 72 HOURS)
     Route: 062
  8. FENTANYL [Suspect]
     Active Substance: FENTANYL
     Dosage: REDUCED BY 25 MICROGRAM / H EVERY 2-3 WEEKS,
     Route: 062
  9. FENTANYL [Suspect]
     Active Substance: FENTANYL
     Dosage: 4 DOSAGE FORM, Q3D
     Route: 062
  10. FENTANYL [Suspect]
     Active Substance: FENTANYL
     Dosage: 3000 MICROGRAM, QD
     Route: 062
  11. FENTANYL [Suspect]
     Active Substance: FENTANYL
     Dosage: 75 MICROGRAM/HR TO 3 4 OF THE PATCH
     Route: 062
  12. FENTANYL [Suspect]
     Active Substance: FENTANYL
     Dosage: REDUCTION BY ONE TABLET EVERY TWO WEEKS
  13. FENTANYL [Suspect]
     Active Substance: FENTANYL
     Dosage: 400 MICROGRAM, Q2H
     Route: 062
  14. FENTANYL [Suspect]
     Active Substance: FENTANYL
     Dosage: 1 DOSAGE FORM (150 MG/H (1 PATCH EVERY 72 H))
  15. FENTANYL [Suspect]
     Active Substance: FENTANYL
     Dosage: UNK (400 MICROGRAM/HOUR)
     Route: 062
  16. TAPENTADOL [Suspect]
     Active Substance: TAPENTADOL
     Indication: Myalgia
     Dosage: UNK
  17. TAPENTADOL [Suspect]
     Active Substance: TAPENTADOL
     Indication: Back pain
  18. TAPENTADOL [Suspect]
     Active Substance: TAPENTADOL
     Indication: Pain
  19. FENTANYL CITRATE [Suspect]
     Active Substance: FENTANYL CITRATE
     Indication: Myalgia
     Dosage: REDUCED BY 1 TABLET EVERY 2 WEEKS
     Route: 048
  20. FENTANYL CITRATE [Suspect]
     Active Substance: FENTANYL CITRATE
     Indication: Pain
     Dosage: 5 DOSAGE FORM, QD (STRENGTH: 400 ?G)
     Route: 048
  21. FENTANYL CITRATE [Suspect]
     Active Substance: FENTANYL CITRATE
     Indication: Back pain
     Dosage: 12 DOSAGE FORM, QD (STRENGTH: 400 MICROGRAMS)
     Route: 048
  22. FENTANYL CITRATE [Suspect]
     Active Substance: FENTANYL CITRATE
     Indication: Spinal muscular atrophy
     Dosage: UNK
  23. FENTANYL CITRATE [Suspect]
     Active Substance: FENTANYL CITRATE
     Dosage: 4800 MICROGRAM, QD
     Route: 002
  24. FENTANYL CITRATE [Suspect]
     Active Substance: FENTANYL CITRATE
     Dosage: 1 DOSAGE FORM, QD
  25. FENTANYL CITRATE [Suspect]
     Active Substance: FENTANYL CITRATE
     Dosage: 400 MICROGRAM, TWO TIMES A DAY
  26. FENTANYL CITRATE [Suspect]
     Active Substance: FENTANYL CITRATE
     Dosage: 400 MG 12 TABLETS PER DAY
  27. OXYCODONE [Suspect]
     Active Substance: OXYCODONE
     Indication: Myalgia
     Dosage: UNK
  28. OXYCODONE [Suspect]
     Active Substance: OXYCODONE
     Indication: Back pain
  29. OXYCODONE [Suspect]
     Active Substance: OXYCODONE
     Indication: Pain
  30. MORPHINE [Suspect]
     Active Substance: MORPHINE
     Indication: Back pain
     Dosage: UNK
  31. MORPHINE [Suspect]
     Active Substance: MORPHINE
     Indication: Myalgia
  32. MORPHINE [Suspect]
     Active Substance: MORPHINE
     Indication: Pain
  33. CHLORPROTHIXENE HYDROCHLORIDE [Suspect]
     Active Substance: CHLORPROTHIXENE HYDROCHLORIDE
     Indication: Mixed anxiety and depressive disorder
     Dosage: 15 MILLIGRAM, BID
     Route: 065
  34. CHLORPROTHIXENE HYDROCHLORIDE [Suspect]
     Active Substance: CHLORPROTHIXENE HYDROCHLORIDE
     Dosage: 30 MILLIGRAM, QD
  35. FENTANYL [Suspect]
     Active Substance: FENTANYL
     Indication: Myalgia
     Dosage: UNK
     Route: 048
  36. FENTANYL [Suspect]
     Active Substance: FENTANYL
     Indication: Back pain
     Dosage: 400 AG 12 X DAILY
  37. FENTANYL [Suspect]
     Active Substance: FENTANYL
     Dosage: 12 DOSAGE FORM (12 TABLET, UNK)
  38. FENTANYL [Suspect]
     Active Substance: FENTANYL
     Indication: Back pain
     Dosage: UNK
     Route: 045
  39. AMITRIPTYLINE [Suspect]
     Active Substance: AMITRIPTYLINE
     Indication: Product used for unknown indication
     Dosage: UNK
  40. PREGABALIN [Concomitant]
     Active Substance: PREGABALIN
     Indication: Product used for unknown indication
     Dosage: 75 MG IN THE MORNING AND 75 MG IN THE EVENING
     Route: 065
  41. PREGABALIN [Concomitant]
     Active Substance: PREGABALIN
     Dosage: 150 MILLIGRAM, BID
     Route: 065
  42. PREGABALIN [Concomitant]
     Active Substance: PREGABALIN
     Dosage: 300 MILLIGRAM, QD (75 MG IN THE MORNING AND 75 MG IN THE EVENING)
  43. PREGABALIN [Concomitant]
     Active Substance: PREGABALIN
     Dosage: 150 MILLIGRAM, QD (75 MG IN THE MORNING AND 75 MG IN THE EVENING)
  44. SERTRALINE [Concomitant]
     Active Substance: SERTRALINE HYDROCHLORIDE
     Indication: Mixed anxiety and depressive disorder
     Dosage: UNK
     Route: 065
  45. QUETIAPINE [Concomitant]
     Active Substance: QUETIAPINE
     Indication: Product used for unknown indication
     Dosage: 50 MILLIGRAM, QD (1 X 2 TABLETS FOR NIGHT)
     Route: 065
  46. QUETIAPINE [Concomitant]
     Active Substance: QUETIAPINE
     Dosage: 25 MILLIGRAM, QD (NIGHT)
     Route: 065
  47. QUETIAPINE [Concomitant]
     Active Substance: QUETIAPINE
     Dosage: UNK
  48. LORAZEPAM [Concomitant]
     Active Substance: LORAZEPAM
     Indication: Mixed anxiety and depressive disorder
     Dosage: UNK
     Route: 065
  49. HYDROXYZINE [Concomitant]
     Active Substance: HYDROXYZINE HYDROCHLORIDE
     Indication: Product used for unknown indication
     Dosage: 10 MILLIGRAM, QD (FOR THE NIGHT)
     Route: 048
  50. HYDROXYZINE [Concomitant]
     Active Substance: HYDROXYZINE HYDROCHLORIDE
     Dosage: UNK
     Route: 065
  51. TIANEPTINE SODIUM [Concomitant]
     Active Substance: TIANEPTINE SODIUM
     Indication: Mixed anxiety and depressive disorder
     Dosage: UNK
  52. TIANEPTINE SODIUM [Concomitant]
     Active Substance: TIANEPTINE SODIUM
     Dosage: 12.5 MILLIGRAM, Q8H
     Route: 065
  53. TIANEPTINE SODIUM [Concomitant]
     Active Substance: TIANEPTINE SODIUM
     Dosage: 37.5 MILLIGRAM, QD (12.5 MG, 3X PER DAY)
  54. BROMHEXINE HYDROCHLORIDE [Concomitant]
     Active Substance: BROMHEXINE HYDROCHLORIDE
     Dosage: UNK (STRENGTH: 8 MG, 1X1)
     Route: 048
  55. TRAVISCO [Concomitant]
     Dosage: UNK (2X1)
     Route: 048
  56. INHIBACE                           /00845401/ [Concomitant]
     Dosage: UNK (STRENGTH: 5 MG, 2 X 1 TABLETS)
     Route: 048
  57. INHIBACE                           /00845401/ [Concomitant]
     Dosage: 10 MILLIGRAM, QD
  58. MIZODIN [Concomitant]
     Indication: Product used for unknown indication
     Dosage: STRENGTH: 250 MG, 2 X 1/2 TABLET
     Route: 048
  59. MIZODIN [Concomitant]
     Dosage: 500 MILLIGRAM, QD (250 MG, 2X PER DAY)
  60. MIZODIN [Concomitant]
     Dosage: 250 MG (2 X HALF TABLET)
  61. CAPTOPRIL [Concomitant]
     Active Substance: CAPTOPRIL
     Indication: Product used for unknown indication
     Dosage: UNK (STRENGTH: 25 MG, AD HOC)
     Route: 048
  62. CAPTOPRIL [Concomitant]
     Active Substance: CAPTOPRIL
     Dosage: 25 MILLIGRAM
     Route: 048
  63. POTASSIUM CHLORIDE [Concomitant]
     Active Substance: POTASSIUM CHLORIDE
     Indication: Product used for unknown indication
     Dosage: 1X1
     Route: 048
  64. POTASSIUM CHLORIDE [Concomitant]
     Active Substance: POTASSIUM CHLORIDE
     Dosage: 1 DOSAGE FORM, QD
  65. PIRACETAM [Concomitant]
     Active Substance: PIRACETAM
     Dosage: UNK (STRENGTH: 1200 MG, 2X1)
     Route: 048
  66. PIRACETAM [Concomitant]
     Active Substance: PIRACETAM
     Dosage: 2400 MILLIGRAM, QD
  67. ETOFENAMATE [Concomitant]
     Active Substance: ETOFENAMATE
     Indication: Product used for unknown indication
     Dosage: UNK
     Route: 061
  68. UROSEPT                            /00024401/ [Concomitant]
     Dosage: UNK (2X1)
     Route: 048
  69. UROSEPT                            /00024401/ [Concomitant]
     Dosage: 2 DOSAGE FORM, QD
  70. LUTEINA                            /00110701/ [Concomitant]
     Indication: Product used for unknown indication
     Dosage: UNK (STRENGTH: 50 MG, 1X1)
     Route: 060
  71. LUTEINA                            /00110701/ [Concomitant]
     Dosage: 50 MILLIGRAM, QD
  72. VITAMIN D3 [Concomitant]
     Active Substance: CHOLECALCIFEROL
     Dosage: 4000 DOSAGE FORM (1X1)
     Route: 048
  73. VITAMIN D3 [Concomitant]
     Active Substance: CHOLECALCIFEROL
     Dosage: 1 DOSAGE FORM, QD
  74. VITAMIN D3 [Concomitant]
     Active Substance: CHOLECALCIFEROL
     Dosage: 4000 INTERNATIONAL UNIT, QD
  75. ALLOPURINOL [Concomitant]
     Active Substance: ALLOPURINOL
     Indication: Product used for unknown indication
     Dosage: UNK (STRENGTH: 300 MG, 1X1/2 TABLET)
     Route: 048
  76. ALLOPURINOL [Concomitant]
     Active Substance: ALLOPURINOL
     Dosage: 300 MILLIGRAM, QD
  77. ALLOPURINOL [Concomitant]
     Active Substance: ALLOPURINOL
     Dosage: 150 MILLIGRAM, QD
  78. ALLOPURINOL [Concomitant]
     Active Substance: ALLOPURINOL
     Dosage: 0.5 DOSAGE FORM, QD
     Route: 048
  79. TORECAN [Concomitant]
     Active Substance: THIETHYLPERAZINE MALATE
     Indication: Product used for unknown indication
     Dosage: UNK (STRENGTH: 6.5 MG, 1X1)
     Route: 048
  80. TORECAN [Concomitant]
     Active Substance: THIETHYLPERAZINE MALATE
     Dosage: 6.5 MILLIGRAM, QD
  81. INDAPAMIDE [Concomitant]
     Active Substance: INDAPAMIDE
     Indication: Product used for unknown indication
     Dosage: UNK (1X1)
     Route: 048
  82. INDAPAMIDE [Concomitant]
     Active Substance: INDAPAMIDE
     Dosage: 1 DOSAGE FORM, QD
  83. BISOPROLOL [Concomitant]
     Active Substance: BISOPROLOL
     Dosage: UNK (STRENGTH: 5 MG, 1 X 1/2 TABLET)
     Route: 048
  84. BISOPROLOL [Concomitant]
     Active Substance: BISOPROLOL
     Dosage: 5 MILLIGRAM, QD
  85. BISOPROLOL [Concomitant]
     Active Substance: BISOPROLOL
     Dosage: 0.5 DOSAGE FORM
     Route: 048
  86. NITRENDIPINE [Concomitant]
     Active Substance: NITRENDIPINE
     Dosage: UNK (STRENGTH: 10 MG, 1 X 1/2 TABLET)
     Route: 048
  87. DUSPATALIN RETARD [Concomitant]
     Dosage: UNK (2X1)
     Route: 048
  88. ULGIX LAXI [Concomitant]
     Dosage: UNK (3X1)
     Route: 048
  89. ULGIX LAXI [Concomitant]
     Dosage: 3 DOSAGE FORM, QD
  90. LIOTON [Concomitant]
     Dosage: UNK (STRENGTH: 1000)
  91. DROTAVERINE HYDROCHLORIDE [Concomitant]
     Active Substance: DROTAVERINE HYDROCHLORIDE
     Indication: Product used for unknown indication
     Dosage: UNK (2X1)
     Route: 048
  92. DROTAVERINE HYDROCHLORIDE [Concomitant]
     Active Substance: DROTAVERINE HYDROCHLORIDE
     Dosage: 2 DOSAGE FORM, QD
  93. ULGIX WZDECIA [Concomitant]
     Dosage: UNK (2X2)
     Route: 048
  94. KETOTIFEN FUMARATE [Concomitant]
     Active Substance: KETOTIFEN FUMARATE
     Dosage: UNK (STRENGTH: 500 MG, 2X1)
     Route: 048
  95. NITRENDIPINE [Concomitant]
     Active Substance: NITRENDIPINE
     Dosage: 10 MILLIGRAM, QD
  96. DUSPATALIN                         /00139403/ [Concomitant]
     Dosage: 2 DOSAGE FORM, QD
  97. CHOLESTEROL [Concomitant]
     Active Substance: CHOLESTEROL
     Dosage: 2 DOSAGE FORM, QD
  98. RENNIE                             /07357001/ [Concomitant]
     Dosage: 2 DOSAGE FORM, QD
  99. HEPARIN SODIUM [Concomitant]
     Active Substance: HEPARIN SODIUM
     Dosage: UNK
     Route: 061
  100. PENTOXIFYLLINE [Concomitant]
     Active Substance: PENTOXIFYLLINE
     Indication: Pain
     Dosage: UNK
  101. LIDOCAINE [Concomitant]
     Active Substance: LIDOCAINE
     Indication: Pain
     Dosage: 18 DOSAGE FORM, QD
     Route: 042
  102. BUPRENORPHINE [Concomitant]
     Active Substance: BUPRENORPHINE
     Indication: Product used for unknown indication
     Dosage: 35 MICROGRAM, QH
     Route: 062
  103. TOLPERISONE [Concomitant]
     Active Substance: TOLPERISONE
     Indication: Myalgia
     Dosage: UNK
  104. DULOXETINE [Concomitant]
     Active Substance: DULOXETINE
     Indication: Product used for unknown indication
     Dosage: 60 MILLIGRAM, AM
  105. DULOXETINE [Concomitant]
     Active Substance: DULOXETINE
     Dosage: 30 MILLIGRAM, AM
  106. PIRACETAM [Concomitant]
     Active Substance: PIRACETAM
     Indication: Product used for unknown indication
     Dosage: 1 DOSAGE FORM, TWO TIMES A DAY
     Route: 048
  107. CALCIUM CARBONATE\MAGNESIUM CARBONATE [Concomitant]
     Active Substance: CALCIUM CARBONATE\MAGNESIUM CARBONATE
     Indication: Product used for unknown indication
     Dosage: 2 X 1 TABLET
     Route: 048

REACTIONS (21)
  - Pain [Unknown]
  - Affective disorder [Unknown]
  - Drug intolerance [Unknown]
  - Drug ineffective [Unknown]
  - Intentional product misuse [Unknown]
  - Drug dependence [Unknown]
  - Withdrawal syndrome [Unknown]
  - Drug tolerance decreased [Unknown]
  - Contraindicated product administered [Unknown]
  - Obstruction [Unknown]
  - Hypotension [Unknown]
  - Intentional product use issue [Unknown]
  - Constipation [Unknown]
  - Mental disorder [Unknown]
  - Drug use disorder [Unknown]
  - Asthenia [Unknown]
  - Drug withdrawal syndrome [Unknown]
  - Product use in unapproved indication [Unknown]
  - Tremor [Unknown]
  - Hyperhidrosis [Unknown]
  - Mixed anxiety and depressive disorder [Unknown]

NARRATIVE: CASE EVENT DATE: 20170101
